FAERS Safety Report 22030253 (Version 1)
Quarter: 2023Q1

REPORT INFORMATION
  Report Type: Spontaneous
  Country: US (occurrence: US)
  Receive Date: 20230223
  Receipt Date: 20230223
  Transmission Date: 20230417
  Serious: No
  Sender: FDA-Public Use
  Company Number: US-PRIMUS-2023-US-001508

PATIENT
  Age: 71 Year
  Sex: Male

DRUGS (2)
  1. SERNIVO [Suspect]
     Active Substance: BETAMETHASONE DIPROPIONATE
     Indication: Pruritus
     Dosage: APPLIED ONCE; APPLY TO ITCHING AREAS ON CHEST AND NECK AS NEEDED, UP TO 2 TO 3 TIMES PER DAY
     Route: 065
     Dates: start: 20220501
  2. Promiseb cream [Concomitant]

REACTIONS (1)
  - Application site exfoliation [Unknown]

NARRATIVE: CASE EVENT DATE: 20220501
